FAERS Safety Report 12967599 (Version 5)
Quarter: 2017Q1

REPORT INFORMATION
  Report Type: Report from Study
  Country: DE (occurrence: DE)
  Receive Date: 20161123
  Receipt Date: 20170217
  Transmission Date: 20170428
  Serious: Yes (Other)
  Sender: FDA-Public Use
  Company Number: PHHY2016DE158882

PATIENT
  Age: 28 Year
  Sex: Female
  Weight: 82 kg

DRUGS (32)
  1. TAFINLAR [Suspect]
     Active Substance: DABRAFENIB MESYLATE
     Dosage: 150 MG, BID
     Route: 048
     Dates: start: 20161121
  2. NOVALGIN [Concomitant]
     Active Substance: METAMIZOLE SODIUM
     Dosage: 1 G, QID
     Route: 042
     Dates: start: 20161112, end: 20161114
  3. NOVALGIN [Concomitant]
     Active Substance: METAMIZOLE SODIUM
     Dosage: 1 G, QID
     Route: 048
     Dates: start: 20161116, end: 20161128
  4. NOVALGIN [Concomitant]
     Active Substance: METAMIZOLE SODIUM
     Dosage: 1 G, QD
     Route: 048
     Dates: start: 20170118, end: 20170118
  5. PREDNICARBATE. [Concomitant]
     Active Substance: PREDNICARBATE
     Indication: PRODUCT USED FOR UNKNOWN INDICATION
     Dosage: 2.5 MG, QD
     Route: 061
     Dates: start: 20170109
  6. PALLADON [Concomitant]
     Active Substance: HYDROMORPHONE
     Dosage: 4 MG, BID
     Route: 048
     Dates: start: 20161108, end: 20161127
  7. NOVALGIN [Concomitant]
     Active Substance: METAMIZOLE SODIUM
     Dosage: 1 G, 5QD
     Route: 042
     Dates: start: 20161111, end: 20161111
  8. CEFUROXIM [Concomitant]
     Active Substance: CEFUROXIME
     Indication: PYREXIA
     Dosage: 1.5 G, TID
     Route: 042
     Dates: start: 20161107, end: 20161110
  9. METRONIDAZOL [Concomitant]
     Active Substance: METRONIDAZOLE
     Indication: PYREXIA
     Dosage: 500 MG, BID
     Route: 042
     Dates: start: 20161107, end: 20161110
  10. TAFINLAR [Suspect]
     Active Substance: DABRAFENIB MESYLATE
     Indication: METASTATIC MALIGNANT MELANOMA
     Dosage: 150 MG, BID
     Route: 048
     Dates: start: 20161110
  11. PALLADON [Concomitant]
     Active Substance: HYDROMORPHONE
     Dosage: 1.3 MG, QD
     Route: 048
     Dates: start: 20161111, end: 20161113
  12. PALLADON [Concomitant]
     Active Substance: HYDROMORPHONE
     Dosage: 1.3 MG, QD
     Route: 048
     Dates: start: 20161111, end: 20161113
  13. NOVALGIN [Concomitant]
     Active Substance: METAMIZOLE SODIUM
     Indication: SPINAL PAIN
     Dosage: 1 G, BID
     Route: 042
     Dates: start: 20161110
  14. ASPIRIN. [Concomitant]
     Active Substance: ASPIRIN
     Indication: PRODUCT USED FOR UNKNOWN INDICATION
     Dosage: 400 MG, QD
     Route: 048
     Dates: start: 20161214, end: 20161218
  15. VITAMIN C [Concomitant]
     Active Substance: ASCORBIC ACID
     Indication: PRODUCT USED FOR UNKNOWN INDICATION
     Dosage: 6 DF, QD
     Route: 048
     Dates: start: 20161214, end: 20161220
  16. MOMETASONE [Concomitant]
     Active Substance: MOMETASONE
     Indication: PRODUCT USED FOR UNKNOWN INDICATION
     Dosage: 1 MG, QD
     Route: 065
     Dates: start: 20170111, end: 20170121
  17. BETAMETHASONE. [Concomitant]
     Active Substance: BETAMETHASONE
     Indication: PRODUCT USED FOR UNKNOWN INDICATION
     Dosage: 1 MG, QD
     Route: 061
     Dates: start: 20161124, end: 20161128
  18. TAFINLAR [Suspect]
     Active Substance: DABRAFENIB MESYLATE
     Indication: BRAF GENE MUTATION
     Dosage: 150 MG, BID
     Route: 048
     Dates: start: 20161111, end: 20161116
  19. TRAMETINIB [Suspect]
     Active Substance: TRAMETINIB
     Indication: BRAF GENE MUTATION
     Dosage: 1.5 MG, QD
     Route: 048
     Dates: start: 20161121
  20. MOVICOL [Concomitant]
     Active Substance: POLYETHYLENE GLYCOL 3350\POTASSIUM CHLORIDE\SODIUM BICARBONATE\SODIUM CHLORIDE
     Indication: CONSTIPATION
     Dosage: 13.81 G, QD
     Route: 048
     Dates: start: 20161108, end: 20161127
  21. VOMEX A [Concomitant]
     Active Substance: DIMENHYDRINATE
     Indication: NAUSEA
     Dosage: 62 MG, QD
     Route: 042
     Dates: start: 20161110, end: 20161110
  22. NOVALGIN [Concomitant]
     Active Substance: METAMIZOLE SODIUM
     Dosage: 1 G, TID
     Route: 042
     Dates: start: 20161115, end: 20161115
  23. APIDRA [Concomitant]
     Active Substance: INSULIN GLULISINE
     Indication: TYPE 1 DIABETES MELLITUS
     Dosage: 29.5 IU, QD
     Route: 058
     Dates: start: 20060101
  24. PARACETAMOL [Concomitant]
     Active Substance: ACETAMINOPHEN
     Indication: SPINAL PAIN
     Dosage: 1 G, QD
     Route: 042
     Dates: start: 20161110, end: 20161110
  25. PARACETAMOL [Concomitant]
     Active Substance: ACETAMINOPHEN
     Dosage: 500 MG, QD
     Route: 048
     Dates: start: 20170117
  26. NOVALGIN [Concomitant]
     Active Substance: METAMIZOLE SODIUM
     Dosage: 1 G, QD
     Route: 048
     Dates: start: 20161115, end: 20161115
  27. NOVAMINSULFON [Concomitant]
     Active Substance: METAMIZOLE
     Indication: PRODUCT USED FOR UNKNOWN INDICATION
     Dosage: 500 MG, 6QD
     Route: 048
     Dates: start: 20161125
  28. TRAMETINIB [Suspect]
     Active Substance: TRAMETINIB
     Indication: METASTATIC MALIGNANT MELANOMA
     Dosage: 2 MG, QD
     Route: 048
     Dates: start: 20161111, end: 20161116
  29. PALLADON [Concomitant]
     Active Substance: HYDROMORPHONE
     Indication: SPINAL PAIN
     Dosage: 1.3 MG, BID
     Route: 048
     Dates: start: 20161110, end: 20161110
  30. PARACETAMOL [Concomitant]
     Active Substance: ACETAMINOPHEN
     Dosage: 500 MG, QD
     Route: 065
     Dates: start: 20161215, end: 20161216
  31. RINGER [Concomitant]
     Indication: PRODUCT USED FOR UNKNOWN INDICATION
     Dosage: 500 MG, QD
     Route: 042
     Dates: start: 20161110, end: 20161115
  32. BETAMETHASONE. [Concomitant]
     Active Substance: BETAMETHASONE
     Dosage: 1 MG, QD
     Route: 061
     Dates: start: 20170121, end: 20170124

REACTIONS (25)
  - Vision blurred [Unknown]
  - Diarrhoea [Recovered/Resolved]
  - Pyrexia [Recovered/Resolved]
  - Alopecia [Not Recovered/Not Resolved]
  - Pain in extremity [Recovered/Resolved]
  - Nausea [Not Recovered/Not Resolved]
  - Decreased appetite [Not Recovered/Not Resolved]
  - Erythema nodosum [Recovered/Resolved]
  - Skin texture abnormal [Not Recovered/Not Resolved]
  - Blood creatine phosphokinase increased [Not Recovered/Not Resolved]
  - Macular oedema [Recovered/Resolved]
  - Myalgia [Recovered/Resolved]
  - Pyrexia [Recovered/Resolved]
  - Nasopharyngitis [Recovered/Resolved]
  - Hepatic pain [Not Recovered/Not Resolved]
  - Hair texture abnormal [Not Recovered/Not Resolved]
  - Nervousness [Not Recovered/Not Resolved]
  - Erythema nodosum [Recovered/Resolved]
  - Bone pain [Recovered/Resolved]
  - Condition aggravated [Recovered/Resolved]
  - Erythema nodosum [Recovered/Resolved]
  - Rash pustular [Not Recovered/Not Resolved]
  - Chills [Recovered/Resolved]
  - Constipation [Recovered/Resolved]
  - Pain in extremity [Recovered/Resolved]

NARRATIVE: CASE EVENT DATE: 20161114
